FAERS Safety Report 15277688 (Version 1)
Quarter: 2018Q4

REPORT INFORMATION
  Report Type: Spontaneous
  Country: NL (occurrence: NL)
  Receive Date: 20180814
  Receipt Date: 20180814
  Transmission Date: 20190204
  Serious: Yes (Hospitalization)
  Sender: FDA-Public Use
  Company Number: NL-TEVA-2018-NL-941491

PATIENT
  Age: 78 Year
  Sex: Male

DRUGS (4)
  1. ATORVASTATINE 40 MG [Concomitant]
     Dosage: 40 MILLIGRAM DAILY; 1D1T,
     Route: 065
  2. CLOPIDROGEL 75 [Concomitant]
     Route: 065
  3. OXYCODON 5 MG [Concomitant]
     Route: 065
  4. PANTOPRAZOL MAAGSAPRESISTENTE TABLET, 20 MG (MILLIGRAM) [Suspect]
     Active Substance: PANTOPRAZOLE SODIUM
     Indication: PROPHYLAXIS
     Dosage: 2X PER DAG 1
     Route: 065
     Dates: start: 20180623, end: 20180707

REACTIONS (1)
  - Muscle spasms [Recovered/Resolved]

NARRATIVE: CASE EVENT DATE: 20180625
